FAERS Safety Report 6878797-0 (Version None)
Quarter: 2010Q3

REPORT INFORMATION
  Report Type: 
  Country: None (occurrence: None)
  Receive Date: 20100727
  Receipt Date: 20100719
  Transmission Date: 20110219
  Serious: Yes (Other)
  Sender: FDA-Public Use
  Company Number: US-ABBOTT-10P-163-0659082-00

PATIENT
  Sex: Male
  Weight: 63.56 kg

DRUGS (2)
  1. HUMIRA [Suspect]
     Indication: CROHN'S DISEASE
     Route: 058
     Dates: start: 20090701
  2. ADVIL LIQUI-GELS [Concomitant]
     Indication: PAIN

REACTIONS (2)
  - DEVICE MALFUNCTION [None]
  - HERNIA [None]
